FAERS Safety Report 24571667 (Version 1)
Quarter: 2024Q4

REPORT INFORMATION
  Report Type: Report from Study
  Country: US (occurrence: US)
  Receive Date: 20241101
  Receipt Date: 20241101
  Transmission Date: 20250115
  Serious: Yes (Other)
  Sender: ALEXION PHARMACEUTICALS
  Company Number: US-ASTRAZENECA-202410USA023223US

PATIENT

DRUGS (4)
  1. STRENSIQ [Suspect]
     Active Substance: ASFOTASE ALFA
     Dosage: UNK
     Route: 065
  2. STRENSIQ [Suspect]
     Active Substance: ASFOTASE ALFA
     Dosage: UNK
  3. STRENSIQ [Suspect]
     Active Substance: ASFOTASE ALFA
     Dosage: UNK
     Route: 065
  4. STRENSIQ [Suspect]
     Active Substance: ASFOTASE ALFA
     Dosage: UNK

REACTIONS (12)
  - Injection site erythema [Unknown]
  - Injection site pain [Unknown]
  - Hypoaesthesia [Unknown]
  - Weight gain poor [Unknown]
  - Tooth hypoplasia [Unknown]
  - Tooth fracture [Unknown]
  - Gingivitis [Unknown]
  - Acne [Unknown]
  - Gait disturbance [Unknown]
  - Dental caries [Unknown]
  - Vitamin B6 decreased [Unknown]
  - Failure to thrive [Unknown]
